FAERS Safety Report 7243798-X (Version None)
Quarter: 2011Q1

REPORT INFORMATION
  Report Type: 
  Country: None (occurrence: None)
  Receive Date: 20110125
  Receipt Date: 20110110
  Transmission Date: 20110831
  Serious: Yes (Death, Other)
  Sender: FDA-Public Use
  Company Number: PHHY2011GR02048

PATIENT
  Age: 22 Year
  Sex: Male

DRUGS (6)
  1. CARBOPLATIN [Suspect]
     Indication: NEPHROBLASTOMA
     Route: 065
  2. IFOSFAMIDE [Concomitant]
     Dosage: 2 G/M2
     Route: 065
  3. MELPHALAN [Concomitant]
     Indication: NEPHROBLASTOMA
     Dosage: 140 MG/M2
  4. ETOPOSIDE [Suspect]
     Indication: NEPHROBLASTOMA
     Dosage: 120 MG/M2
     Route: 065
  5. FILGRASTIM [Suspect]
  6. AUTOLOGOUS HSC [Concomitant]

REACTIONS (11)
  - MUCOSAL INFLAMMATION [None]
  - THERAPEUTIC RESPONSE DECREASED [None]
  - RENAL IMPAIRMENT [None]
  - DIARRHOEA [None]
  - GASTROINTESTINAL OBSTRUCTION [None]
  - THROMBOCYTOPENIA [None]
  - EPISTAXIS [None]
  - ABDOMINAL MASS [None]
  - HEPATIC NEOPLASM [None]
  - FEBRILE NEUTROPENIA [None]
  - ANAEMIA [None]
